FAERS Safety Report 10638975 (Version 1)
Quarter: 2014Q4

REPORT INFORMATION
  Report Type: Spontaneous
  Country: US (occurrence: US)
  Receive Date: 20141208
  Receipt Date: 20141208
  Transmission Date: 20150529
  Serious: Yes (Other)
  Sender: FDA-Public Use
  Company Number: US-BAYER-2014-177638

PATIENT
  Age: 27 Year
  Sex: Female

DRUGS (4)
  1. ATIVAN [Concomitant]
     Active Substance: LORAZEPAM
  2. COUMADIN [Concomitant]
     Active Substance: WARFARIN SODIUM
  3. MIRENA [Suspect]
     Active Substance: LEVONORGESTREL
     Dosage: 20 MCG/24HR, CONT
     Route: 015
  4. XANAX [Concomitant]
     Active Substance: ALPRAZOLAM

REACTIONS (7)
  - Haemoglobin decreased [None]
  - Menstrual disorder [Recovering/Resolving]
  - Viral infection [None]
  - Panic attack [None]
  - Fatigue [None]
  - Nasopharyngitis [None]
  - Palpitations [None]
